FAERS Safety Report 10775901 (Version 1)
Quarter: 2015Q1

REPORT INFORMATION
  Report Type: Spontaneous
  Country: US (occurrence: None)
  Receive Date: 20150205
  Receipt Date: 20150205
  Transmission Date: 20150721
  Serious: No
  Sender: FDA-Public Use
  Company Number: None

PATIENT

DRUGS (1)
  1. ABILIFY [Suspect]
     Active Substance: ARIPIPRAZOLE

REACTIONS (7)
  - Drug dispensing error [None]
  - Fatigue [None]
  - Lethargy [None]
  - Somnolence [None]
  - Accidental overdose [None]
  - Heart rate decreased [None]
  - Abdominal pain upper [None]
